FAERS Safety Report 20802313 (Version 2)
Quarter: 2022Q2

REPORT INFORMATION
  Report Type: Spontaneous
  Country: FR (occurrence: FR)
  Receive Date: 20220509
  Receipt Date: 20220514
  Transmission Date: 20220721
  Serious: Yes (Other)
  Sender: FDA-Public Use
  Company Number: FR-TAKEDA-2022TUS029198

PATIENT
  Age: 40 Year
  Sex: Female

DRUGS (4)
  1. CUVITRU [Suspect]
     Active Substance: HUMAN IMMUNOGLOBULIN G
     Indication: Selective IgA immunodeficiency
     Dosage: 1 DOSAGE FORM, 1/WEEK
     Route: 065
  2. CUVITRU [Suspect]
     Active Substance: HUMAN IMMUNOGLOBULIN G
     Indication: Selective IgG subclass deficiency
  3. CORTISONE [Concomitant]
     Active Substance: CORTISONE
     Dosage: UNK
     Route: 065
  4. EBASTINE [Concomitant]
     Active Substance: EBASTINE
     Indication: Rash
     Dosage: UNK
     Route: 065

REACTIONS (14)
  - Pneumonia [Recovering/Resolving]
  - Skin reaction [Unknown]
  - Acne [Unknown]
  - Sunburn [Unknown]
  - Haematoma [Unknown]
  - Bronchitis viral [Recovering/Resolving]
  - Influenza [Recovering/Resolving]
  - Drug eruption [Not Recovered/Not Resolved]
  - Skin lesion [Not Recovered/Not Resolved]
  - Anxiety [Unknown]
  - Contusion [Unknown]
  - Injection site reaction [Unknown]
  - Injection site erythema [Unknown]
  - Product use in unapproved indication [Unknown]
